FAERS Safety Report 14026331 (Version 2)
Quarter: 2017Q4

REPORT INFORMATION
  Report Type: Spontaneous
  Country: US (occurrence: US)
  Receive Date: 20170929
  Receipt Date: 20171003
  Transmission Date: 20180321
  Serious: Yes (Hospitalization)
  Sender: FDA-Public Use
  Company Number: US-ROCHE-1998178

PATIENT
  Age: 80 Year
  Sex: Male
  Weight: 115.77 kg

DRUGS (18)
  1. VITAMIN C [Concomitant]
     Active Substance: ASCORBIC ACID
     Route: 048
  2. AMITRIPTYLINE HCL [Concomitant]
     Active Substance: AMITRIPTYLINE
     Dosage: AT BEDTIME
     Route: 048
  3. MONTELUKAST SODIUM. [Concomitant]
     Active Substance: MONTELUKAST SODIUM
     Route: 048
  4. OXYGEN. [Concomitant]
     Active Substance: OXYGEN
     Dosage: 2 LPM CONTINEOUS
     Route: 065
     Dates: start: 20120711
  5. INSULIN [Concomitant]
     Active Substance: INSULIN NOS
     Indication: TYPE 2 DIABETES MELLITUS
     Route: 065
  6. INSULIN [Concomitant]
     Active Substance: INSULIN NOS
     Indication: HYPERGLYCAEMIA
  7. FUROSEMIDE. [Concomitant]
     Active Substance: FUROSEMIDE
     Dosage: 2 TABLET IN MORNING AND 2 TABLET AT 2 PM
     Route: 048
  8. ACTEMRA [Suspect]
     Active Substance: TOCILIZUMAB
     Indication: RHEUMATOID ARTHRITIS
     Dosage: 162 MG/0.9ML
     Route: 058
     Dates: start: 20170720
  9. ACTEMRA [Suspect]
     Active Substance: TOCILIZUMAB
     Indication: TEMPORAL ARTERITIS
  10. LOSARTAN POTASSIUM. [Concomitant]
     Active Substance: LOSARTAN POTASSIUM
     Route: 048
  11. ZOCOR [Concomitant]
     Active Substance: SIMVASTATIN
     Route: 048
  12. TRESIBA [Concomitant]
     Active Substance: INSULIN DEGLUDEC
     Dosage: 200 UNIT/ML, 52 UNITS SUBCUTANEOUS AT BEDTIME NIGHTLY
     Route: 058
     Dates: start: 20170223
  13. VITAMIN D3 [Concomitant]
     Active Substance: CHOLECALCIFEROL
     Route: 065
  14. BICALUTAMIDE. [Concomitant]
     Active Substance: BICALUTAMIDE
     Route: 048
  15. DIAMOX SEQUELS [Concomitant]
     Active Substance: ACETAZOLAMIDE
     Dosage: ON TABLET MONDAY AND FRIDAY
     Route: 065
  16. TEMAZEPAM CAPSULES [Concomitant]
     Active Substance: TEMAZEPAM
     Route: 048
  17. TRAMADOL HCL [Concomitant]
     Active Substance: TRAMADOL HYDROCHLORIDE
     Route: 048
  18. DESONIDE. [Concomitant]
     Active Substance: DESONIDE
     Dosage: 0.05 % EXTERNAL LOTION APPLY SPARINGLY TO AFFECTED AREA FOR ITCHING OF FACE, ARMPITS AND GROIN?118 M
     Route: 065
     Dates: start: 20170907

REACTIONS (5)
  - Gait inability [Unknown]
  - Peripheral swelling [Unknown]
  - Cardiac disorder [Unknown]
  - Pneumonia [Unknown]
  - Dysstasia [Unknown]

NARRATIVE: CASE EVENT DATE: 20170917
